FAERS Safety Report 9216736 (Version 1)
Quarter: 2013Q2

REPORT INFORMATION
  Report Type: Spontaneous
  Country: US (occurrence: US)
  Receive Date: 20130405
  Receipt Date: 20130405
  Transmission Date: 20140414
  Serious: No
  Sender: FDA-Public Use
  Company Number: US-BRACCO-007805

PATIENT
  Age: 25 Year
  Sex: Female

DRUGS (1)
  1. MDP [Suspect]
     Indication: BONE SCAN
     Route: 042
     Dates: start: 20120323, end: 20120323

REACTIONS (2)
  - Exposure during pregnancy [Unknown]
  - Vomiting [Unknown]
